FAERS Safety Report 7271634-4 (Version None)
Quarter: 2011Q1

REPORT INFORMATION
  Report Type: 
  Country: None (occurrence: None)
  Receive Date: 20110203
  Receipt Date: 20110124
  Transmission Date: 20110831
  Serious: Yes (Death, Other)
  Sender: FDA-Public Use
  Company Number: US-CELGENEUS-163-20785-11012724

PATIENT

DRUGS (2)
  1. GLUCOCORTICOSTEROIDS [Concomitant]
     Route: 065
  2. THALOMID [Suspect]
     Indication: MULTIPLE MYELOMA
     Route: 048

REACTIONS (2)
  - MYOCARDIAL INFARCTION [None]
  - OSTEONECROSIS OF JAW [None]
